FAERS Safety Report 18044871 (Version 1)
Quarter: 2020Q3

REPORT INFORMATION
  Report Type: Spontaneous
  Country: DK (occurrence: DK)
  Receive Date: 20200720
  Receipt Date: 20200720
  Transmission Date: 20201103
  Serious: Yes (Hospitalization, Other)
  Sender: FDA-Public Use
  Company Number: DK-SA-2020SA182265

PATIENT

DRUGS (2)
  1. AUBAGIO [Suspect]
     Active Substance: TERIFLUNOMIDE
     Dosage: 14 UNK
     Route: 048
     Dates: start: 20150924, end: 201611
  2. AUBAGIO [Suspect]
     Active Substance: TERIFLUNOMIDE
     Indication: MULTIPLE SCLEROSIS
     Dosage: 14 MG, QD
     Route: 048
     Dates: start: 20150527, end: 20150909

REACTIONS (12)
  - Menstrual disorder [Recovered/Resolved]
  - Colitis [Unknown]
  - Haematochezia [Unknown]
  - Nausea [Unknown]
  - Headache [Unknown]
  - Crohn^s disease [Unknown]
  - Vomiting [Unknown]
  - Hepatic enzyme increased [Unknown]
  - Abdominal pain upper [Unknown]
  - Diarrhoea [Unknown]
  - Frequent bowel movements [Unknown]
  - Constipation [Unknown]

NARRATIVE: CASE EVENT DATE: 2015
